FAERS Safety Report 7119500-9 (Version None)
Quarter: 2010Q4

REPORT INFORMATION
  Report Type: 
  Country: None (occurrence: None)
  Receive Date: 20101028
  Receipt Date: 20091027
  Transmission Date: 20110411
  Serious: Yes (Other)
  Sender: FDA-Public Use
  Company Number: DSA_41897_2009

PATIENT
  Age: 45 Year
  Sex: Female

DRUGS (4)
  1. WELLBUTRIN [Suspect]
     Indication: DEPRESSION
     Dosage: (150 MG EVERY MORNING AND 100 MG EVERY EVENING ORAL)
     Route: 048
     Dates: start: 20080101
  2. LEXAPRO [Suspect]
     Indication: DEPRESSION
     Dosage: (10 MG QD ORAL)
     Route: 048
     Dates: start: 20080101
  3. LYRICA [Suspect]
     Indication: FIBROMYALGIA
     Dosage: (DF)
     Dates: start: 20090101, end: 20090101
  4. LUNESTA [Concomitant]

REACTIONS (2)
  - HOSTILITY [None]
  - SUICIDAL IDEATION [None]
